FAERS Safety Report 11335961 (Version 1)
Quarter: 2015Q3

REPORT INFORMATION
  Report Type: Spontaneous
  Country: US (occurrence: None)
  Receive Date: 20150731
  Receipt Date: 20150731
  Transmission Date: 20151125
  Serious: Yes (Hospitalization)
  Sender: FDA-Public Use
  Company Number: None

PATIENT
  Age: 57 Year
  Sex: Male
  Weight: 95.3 kg

DRUGS (3)
  1. WARFARIN [Suspect]
     Active Substance: WARFARIN
     Indication: ATRIAL FIBRILLATION
     Route: 048
     Dates: start: 20031030
  2. WARFARIN [Suspect]
     Active Substance: WARFARIN
     Indication: INTRACARDIAC THROMBUS
     Route: 048
     Dates: start: 20031030
  3. DALTEPARIN [Suspect]
     Active Substance: DALTEPARIN
     Route: 058
     Dates: start: 20110910, end: 20110928

REACTIONS (4)
  - Haemorrhagic anaemia [None]
  - Haemorrhage [None]
  - Haematuria [None]
  - Anaemia [None]

NARRATIVE: CASE EVENT DATE: 20110923
